FAERS Safety Report 5843013-5 (Version None)
Quarter: 2008Q3

REPORT INFORMATION
  Report Type: 
  Country: None (occurrence: None)
  Receive Date: 20080811
  Receipt Date: 20080728
  Transmission Date: 20090109
  Serious: Yes (Death)
  Sender: FDA-Public Use
  Company Number: 19911

PATIENT
  Age: 39 Year
  Sex: Female

DRUGS (8)
  1. CYTARABINE [Suspect]
     Indication: ACUTE MYELOID LEUKAEMIA
  2. DAUNORUBICIN HCL [Suspect]
     Indication: ACUTE MYELOID LEUKAEMIA RECURRENT
     Dosage: 20 MG FREQ
  3. ETOPOSIDE [Suspect]
     Indication: ACUTE MYELOID LEUKAEMIA RECURRENT
  4. MITOXANTRONE [Suspect]
     Indication: ACUTE MYELOID LEUKAEMIA RECURRENT
  5. METHOTREXATE SODIUM [Suspect]
  6. TACROLIMUS [Suspect]
  7. ASPARAGINASE [Suspect]
     Indication: ACUTE MYELOID LEUKAEMIA
  8. CYCLOPHOSPHAMIDE [Suspect]
     Indication: ACUTE MYELOID LEUKAEMIA RECURRENT
     Dosage: 60 MG/KG

REACTIONS (3)
  - DIPLOPIA [None]
  - GUILLAIN-BARRE SYNDROME [None]
  - STEM CELL TRANSPLANT [None]
